FAERS Safety Report 24687987 (Version 1)
Quarter: 2024Q4

REPORT INFORMATION
  Report Type: Spontaneous
  Country: IN (occurrence: IN)
  Receive Date: 20241202
  Receipt Date: 20241202
  Transmission Date: 20250115
  Serious: Yes (Other)
  Sender: PFIZER
  Company Number: IN-PFIZER INC-2021135078

PATIENT
  Age: 55 Year
  Sex: Male

DRUGS (2)
  1. SUTENT [Suspect]
     Active Substance: SUNITINIB MALATE
     Dosage: 32.5 MG, 2 WEEKS ON, 1 WEEK OFF
     Route: 048
  2. SUTENT [Suspect]
     Active Substance: SUNITINIB MALATE
     Dosage: 37.5 MG, 1X/DAY, TWO WEEKS ON + ONE WEEK OFF
     Route: 048
     Dates: start: 20180523

REACTIONS (6)
  - Hypothyroidism [Unknown]
  - Prostatic specific antigen increased [Unknown]
  - Product prescribing error [Unknown]
  - Inappropriate schedule of product administration [Unknown]
  - Palmar-plantar erythrodysaesthesia syndrome [Unknown]
  - White blood cells urine positive [Unknown]
